FAERS Safety Report 19068436 (Version 1)
Quarter: 2021Q1

REPORT INFORMATION
  Report Type: Spontaneous
  Country: CZ (occurrence: CZ)
  Receive Date: 20210329
  Receipt Date: 20210329
  Transmission Date: 20210420
  Serious: Yes (Hospitalization, Other)
  Sender: FDA-Public Use
  Company Number: NVSC2021CZ063024

PATIENT
  Age: 24 Year
  Sex: Female

DRUGS (4)
  1. OSPEN [Suspect]
     Active Substance: PENICILLIN V
     Indication: COUGH
  2. NASONEX [Concomitant]
     Active Substance: MOMETASONE FUROATE
     Indication: NASAL CONGESTION
     Dosage: 50 UG, QD (2?0?0)
     Route: 045
     Dates: start: 20210203, end: 20210212
  3. OSPEN [Suspect]
     Active Substance: PENICILLIN V
     Indication: STREPTOCOCCAL INFECTION
     Dosage: 1500000 IU, Q8H (0,981 G 3 TIMES DAILY, 1 TABLET EVERY 8 HOURS 1?1?1)
     Route: 048
     Dates: start: 20210203, end: 20210212
  4. XADOS [Concomitant]
     Active Substance: BILASTINE
     Indication: NASAL CONGESTION
     Dosage: 20 MG, QD (1?0?0)
     Route: 048
     Dates: start: 20210203, end: 20210212

REACTIONS (4)
  - Drug eruption [Recovered/Resolved]
  - Dyspnoea [Recovered/Resolved]
  - Joint stiffness [Recovered/Resolved]
  - Cough [Recovered/Resolved]

NARRATIVE: CASE EVENT DATE: 20210214
